FAERS Safety Report 9104160 (Version 1)
Quarter: 2013Q1

REPORT INFORMATION
  Report Type: Report from Study
  Country: US (occurrence: US)
  Receive Date: 20130219
  Receipt Date: 20130219
  Transmission Date: 20140127
  Serious: Yes (Hospitalization)
  Sender: FDA-Public Use
  Company Number: US-ROCHE-1191992

PATIENT
  Sex: Male
  Weight: 95.34 kg

DRUGS (2)
  1. XELODA [Suspect]
     Indication: LUNG NEOPLASM MALIGNANT
     Dosage: 1500MG IN MORNING AND 1000MG IN EVENING
     Route: 048
     Dates: start: 201209, end: 201212
  2. XELODA [Suspect]
     Indication: COLON CANCER

REACTIONS (5)
  - Urinary retention [Recovered/Resolved]
  - Sepsis [Recovered/Resolved]
  - Malaise [Recovered/Resolved]
  - Asthenia [Not Recovered/Not Resolved]
  - Loss of consciousness [Recovered/Resolved]
